FAERS Safety Report 17257537 (Version 3)
Quarter: 2020Q1

REPORT INFORMATION
  Report Type: Spontaneous
  Country: US (occurrence: US)
  Receive Date: 20200110
  Receipt Date: 20200218
  Transmission Date: 20200409
  Serious: No
  Sender: FDA-Public Use
  Company Number: US-PFIZER INC-2020009790

PATIENT
  Age: 33 Year
  Sex: Female
  Weight: 104.33 kg

DRUGS (10)
  1. LEVOTHYROXINE. [Concomitant]
     Active Substance: LEVOTHYROXINE
     Indication: HYPOTHYROIDISM
     Dosage: 1 DF, 1X/DAY (ONE TABLET, BY MOUTH, DAILY IN THE MORNING)
     Route: 048
  2. SOMAVERT [Suspect]
     Active Substance: PEGVISOMANT
     Indication: ACROMEGALY
     Dosage: 10 MG, 1X/DAY(10MG BY INJECTION ONCE A DAY)
     Dates: start: 20191228
  3. DESMOPRESSIN [Suspect]
     Active Substance: DESMOPRESSIN
     Dosage: 0.1 MG, 2X/DAY
     Route: 048
     Dates: start: 201909
  4. SOMAVERT [Suspect]
     Active Substance: PEGVISOMANT
     Indication: PITUITARY TUMOUR
  5. CORTEF [Concomitant]
     Active Substance: HYDROCORTISONE
     Dosage: 5 MG, 1X/DAY (ONE 5MG TABLET, BY MOUTH AT NIGHT)
     Route: 048
  6. DESMOPRESSIN [Suspect]
     Active Substance: DESMOPRESSIN
     Indication: POLLAKIURIA
     Dosage: UNK UNK, 2X/DAY(0.1MG; ONE PILL IN THE MORNING AND ONE HALF TABLET AT NIGHT BY MOUTH)
     Route: 048
     Dates: start: 201906
  7. CORTEF [Concomitant]
     Active Substance: HYDROCORTISONE
     Indication: ADRENAL INSUFFICIENCY
     Dosage: 10 MG, 1X/DAY (ONE 10MG TABLET, BY MOUTH, EVERY MORNING)
     Route: 048
  8. LANTUS [Concomitant]
     Active Substance: INSULIN GLARGINE
     Indication: TYPE 2 DIABETES MELLITUS
     Dosage: 8 IU, 2X/DAY (8 UNITS BY INJECTION TWICE DAILY)
     Dates: start: 201904
  9. METOPROLOL. [Concomitant]
     Active Substance: METOPROLOL
     Indication: HYPERTENSION
     Dosage: 1 DF, 2X/DAY(ONE TABLET, BY MOUTH, TWICE DAILY (ONE IN THE MORNING AND ONE AT NIGHT))
     Route: 048
  10. OZEMPIC [Concomitant]
     Active Substance: SEMAGLUTIDE
     Indication: TYPE 2 DIABETES MELLITUS
     Dosage: 1 MG, WEEKLY(DOSE DEPENDS ON PEN, SHE TAKES THE 1MG BY INJECTION ONCE WEEKLY, OR HOWEVER IT COMES)
     Dates: start: 201906

REACTIONS (4)
  - Headache [Unknown]
  - Asthenia [Unknown]
  - Nausea [Unknown]
  - Malaise [Unknown]

NARRATIVE: CASE EVENT DATE: 20200103
